FAERS Safety Report 8247546-6 (Version None)
Quarter: 2012Q1

REPORT INFORMATION
  Report Type: 
  Country: None (occurrence: None)
  Receive Date: 20120330
  Receipt Date: 20120323
  Transmission Date: 20120608
  Serious: Yes (Other)
  Sender: FDA-Public Use
  Company Number: US-ABBOTT-11P-163-0707638-00

PATIENT
  Sex: Female
  Weight: 66.284 kg

DRUGS (14)
  1. LEVOTHYROXINE SODIUM [Concomitant]
     Indication: THYROID DISORDER
     Route: 048
  2. HUMIRA [Suspect]
  3. LAMICTAL [Concomitant]
     Indication: BIPOLAR DISORDER
  4. ALPRAZOLAM [Concomitant]
     Indication: PRODUCT USED FOR UNKNOWN INDICATION
     Route: 048
  5. HUMIRA [Suspect]
     Indication: RHEUMATOID ARTHRITIS
     Dates: start: 20040101
  6. MULTIVITAMIN [Concomitant]
     Indication: PRODUCT USED FOR UNKNOWN INDICATION
  7. ASPIRIN [Concomitant]
     Indication: PRODUCT USED FOR UNKNOWN INDICATION
  8. ZOLOFT [Concomitant]
     Indication: DEPRESSION
     Route: 048
  9. ZOLOFT [Concomitant]
     Dosage: 150MG DAILY
  10. LOVAZA [Concomitant]
     Indication: PRODUCT USED FOR UNKNOWN INDICATION
  11. PRAVASTATIN [Concomitant]
     Indication: BLOOD CHOLESTEROL INCREASED
  12. HUMIRA [Suspect]
  13. WELLBUTRIN SR [Concomitant]
     Indication: DEPRESSION
  14. ETODOLAC [Concomitant]
     Indication: PRODUCT USED FOR UNKNOWN INDICATION
     Route: 048

REACTIONS (17)
  - FALL [None]
  - ANKLE FRACTURE [None]
  - AORTIC ANEURYSM [None]
  - PAIN IN EXTREMITY [None]
  - ESSENTIAL TREMOR [None]
  - TOOTH REPAIR [None]
  - BLOOD PRESSURE INCREASED [None]
  - PERITONSILLAR ABSCESS [None]
  - PYREXIA [None]
  - FATIGUE [None]
  - GAIT DISTURBANCE [None]
  - NEUROPATHY PERIPHERAL [None]
  - ASTHENIA [None]
  - HYPOAESTHESIA [None]
  - BALANCE DISORDER [None]
  - SOMNOLENCE [None]
  - TOOTH EXTRACTION [None]
